FAERS Safety Report 5772379-X (Version None)
Quarter: 2008Q2

REPORT INFORMATION
  Report Type: 
  Country: None (occurrence: None)
  Receive Date: 20080613
  Receipt Date: 20080513
  Transmission Date: 20081010
  Serious: No
  Sender: FDA-Public Use
  Company Number: US-BAYER-200822805NA

PATIENT
  Age: 40 Year
  Sex: Female
  Weight: 82 kg

DRUGS (2)
  1. ULTRAVIST 300 [Suspect]
     Indication: COMPUTERISED TOMOGRAM
     Dosage: TOTAL DAILY DOSE: 150 ML  UNIT DOSE: 150 ML
     Route: 042
     Dates: start: 20080513, end: 20080513
  2. CONTRAST MEDIA [Concomitant]
     Indication: COMPUTERISED TOMOGRAM
     Route: 048
     Dates: start: 20080513, end: 20080513

REACTIONS (2)
  - NAUSEA [None]
  - VOMITING [None]
